FAERS Safety Report 11755039 (Version 1)
Quarter: 2015Q4

REPORT INFORMATION
  Report Type: Spontaneous
  Country: US (occurrence: US)
  Receive Date: 20151119
  Receipt Date: 20151119
  Transmission Date: 20160304
  Serious: No
  Sender: FDA-Public Use
  Company Number: US-TEVA-609984USA

PATIENT
  Age: 31 Year
  Sex: Female
  Weight: 96.25 kg

DRUGS (3)
  1. PROVIGIL [Suspect]
     Active Substance: MODAFINIL
     Indication: NARCOLEPSY
     Dates: end: 20151102
  2. XANAX [Concomitant]
     Active Substance: ALPRAZOLAM
  3. NUVIGIL [Suspect]
     Active Substance: ARMODAFINIL
     Indication: NARCOLEPSY

REACTIONS (7)
  - Swollen tongue [Unknown]
  - Migraine [Unknown]
  - Lip swelling [Unknown]
  - Gait disturbance [Unknown]
  - Dystonia [Not Recovered/Not Resolved]
  - Confusional state [Not Recovered/Not Resolved]
  - Muscle tightness [Unknown]

NARRATIVE: CASE EVENT DATE: 20151102
